FAERS Safety Report 5211136-X (Version None)
Quarter: 2007Q1

REPORT INFORMATION
  Report Type: 
  Country: None (occurrence: None)
  Receive Date: 20070117
  Receipt Date: 20070108
  Transmission Date: 20070707
  Serious: Yes (Other)
  Sender: FDA-Public Use
  Company Number: US-PFIZER INC-2006107466

PATIENT
  Sex: Male
  Weight: 86.2 kg

DRUGS (1)
  1. BEXTRA [Suspect]
     Indication: BACK PAIN
     Dates: start: 20050404, end: 20050410

REACTIONS (1)
  - STEVENS-JOHNSON SYNDROME [None]
